FAERS Safety Report 4795535-6 (Version None)
Quarter: 2005Q3

REPORT INFORMATION
  Report Type: 
  Country: None (occurrence: None)
  Receive Date: 20050916
  Receipt Date: 20050711
  Transmission Date: 20060218
  Serious: Yes (Other)
  Sender: FDA-Public Use
  Company Number: US-JNJFOC-20050504795

PATIENT
  Sex: Female

DRUGS (2)
  1. TOPAMAX [Suspect]
     Indication: EPILEPSY
     Dosage: 200 MG, 2 IN 1 DAY;
  2. RISPERDAL [Suspect]
     Indication: DRUG USE FOR UNKNOWN INDICATION

REACTIONS (7)
  - ANGER [None]
  - CONFUSIONAL STATE [None]
  - LETHARGY [None]
  - MOOD SWINGS [None]
  - PARAMNESIA [None]
  - SOCIAL AVOIDANT BEHAVIOUR [None]
  - WEIGHT DECREASED [None]
